FAERS Safety Report 8814733 (Version 2)
Quarter: 2012Q4

REPORT INFORMATION
  Report Type: 
  Country: BR (occurrence: BR)
  Receive Date: 20120928
  Receipt Date: 20121008
  Transmission Date: 20130627
  Serious: Yes (Other)
  Sender: FDA-Public Use
  Company Number: BR-PFIZER INC-2012185686

PATIENT
  Age: 31 Year
  Sex: Male
  Weight: 96 kg

DRUGS (2)
  1. GEODON [Suspect]
     Indication: SCHIZOPHRENIA
     Dosage: 40 mg, 1x/day
     Route: 048
     Dates: start: 201206, end: 2012
  2. GEODON [Suspect]
     Indication: MENTAL DISORDER
     Dosage: 80 mg, 1x/day
     Route: 048
     Dates: start: 2012

REACTIONS (5)
  - Blood pressure fluctuation [Recovered/Resolved]
  - Tachycardia [Recovered/Resolved]
  - Presyncope [Recovered/Resolved]
  - Feeling abnormal [Recovered/Resolved]
  - Dizziness [Recovered/Resolved]
